FAERS Safety Report 9132194 (Version 2)
Quarter: 2013Q3

REPORT INFORMATION
  Report Type: Report from Study
  Country: CA (occurrence: CA)
  Receive Date: 20130301
  Receipt Date: 20130927
  Transmission Date: 20140515
  Serious: Yes (Other)
  Sender: FDA-Public Use
  Company Number: CA-JNJFOC-20130216485

PATIENT
  Age: 70 Year
  Sex: Male

DRUGS (3)
  1. SIMPONI [Suspect]
     Indication: ANKYLOSING SPONDYLITIS
     Route: 058
     Dates: start: 20121224, end: 20130123
  2. CELEBREX [Concomitant]
     Route: 048
  3. BABY ASA [Concomitant]
     Route: 048

REACTIONS (2)
  - Myasthenia gravis [Unknown]
  - Nasopharyngitis [Unknown]
